FAERS Safety Report 22069798 (Version 2)
Quarter: 2023Q1

REPORT INFORMATION
  Report Type: Spontaneous
  Country: US (occurrence: US)
  Receive Date: 20230307
  Receipt Date: 20230317
  Transmission Date: 20230418
  Serious: Yes (Hospitalization, Other)
  Sender: FDA-Public Use
  Company Number: US-MERCK-MNSC-02343774

PATIENT
  Age: 75 Year
  Sex: Male

DRUGS (1)
  1. KEYTRUDA [Suspect]
     Active Substance: PEMBROLIZUMAB
     Indication: Malignant melanoma
     Dosage: 200 MILLIGRAM, Q3W
     Route: 042
     Dates: start: 20211213, end: 20220606

REACTIONS (8)
  - Syncope [Unknown]
  - Hypothalamo-pituitary disorder [Recovering/Resolving]
  - Ill-defined disorder [Unknown]
  - Blood creatinine increased [Unknown]
  - Dehydration [Unknown]
  - Blood electrolytes abnormal [Unknown]
  - Secondary adrenocortical insufficiency [Recovering/Resolving]
  - Product communication issue [Unknown]

NARRATIVE: CASE EVENT DATE: 20220601
